FAERS Safety Report 7371229-8 (Version None)
Quarter: 2011Q1

REPORT INFORMATION
  Report Type: 
  Country: None (occurrence: None)
  Receive Date: 20110324
  Receipt Date: 20110315
  Transmission Date: 20110831
  Serious: Yes (Other)
  Sender: FDA-Public Use
  Company Number: US-BAYER-US-2007-007828

PATIENT
  Sex: Female
  Weight: 64.545 kg

DRUGS (3)
  1. BETASERON [Suspect]
     Route: 058
     Dates: start: 20070719, end: 20080213
  2. PIROXICAM [Concomitant]
     Route: 065
     Dates: end: 20070701
  3. BETASERON [Suspect]
     Indication: RELAPSING-REMITTING MULTIPLE SCLEROSIS
     Route: 058
     Dates: start: 20010501, end: 20070702

REACTIONS (18)
  - INJECTION SITE HAEMORRHAGE [None]
  - ALANINE AMINOTRANSFERASE INCREASED [None]
  - DISUSE SYNDROME [None]
  - WHITE BLOOD CELL COUNT INCREASED [None]
  - LOCALISED INFECTION [None]
  - INJECTION SITE RASH [None]
  - INJECTION SITE MASS [None]
  - OEDEMA PERIPHERAL [None]
  - ASPARTATE AMINOTRANSFERASE INCREASED [None]
  - INJECTION SITE ATROPHY [None]
  - INJECTION SITE PAIN [None]
  - PHLEBITIS [None]
  - JOINT RANGE OF MOTION DECREASED [None]
  - BLOOD POTASSIUM DECREASED [None]
  - ERYTHEMA [None]
  - INJECTION SITE CELLULITIS [None]
  - OROPHARYNGEAL PAIN [None]
  - COUGH [None]
